FAERS Safety Report 7657335-9 (Version None)
Quarter: 2011Q3

REPORT INFORMATION
  Report Type: 
  Country: None (occurrence: None)
  Receive Date: 20110804
  Receipt Date: 20110726
  Transmission Date: 20111222
  Serious: Yes (Hospitalization)
  Sender: FDA-Public Use
  Company Number: US-CEPHALON-2011004001

PATIENT
  Sex: Female
  Weight: 75 kg

DRUGS (5)
  1. ARMODAFINIL [Suspect]
     Indication: BIPOLAR DISORDER
  2. ZOCOR [Concomitant]
     Dates: start: 20090101
  3. METFORMIN HCL [Concomitant]
     Dates: start: 20110613
  4. ARMODAFINIL [Suspect]
     Indication: MAJOR DEPRESSION
     Dosage: 50-150MG
     Route: 048
     Dates: start: 20110716
  5. LITHIUM CARBONATE [Concomitant]
     Dates: start: 20090101

REACTIONS (2)
  - BIPOLAR I DISORDER [None]
  - SUICIDAL IDEATION [None]
